FAERS Safety Report 7454937-X (Version None)
Quarter: 2011Q2

REPORT INFORMATION
  Report Type: 
  Country: None (occurrence: None)
  Receive Date: 20110503
  Receipt Date: 20110423
  Transmission Date: 20111010
  Serious: Yes (Hospitalization)
  Sender: FDA-Public Use
  Company Number: KR-BRISTOL-MYERS SQUIBB COMPANY-15683493

PATIENT
  Age: 48 Year
  Sex: Female

DRUGS (2)
  1. WARFARIN SODIUM [Suspect]
     Indication: ANTICOAGULANT THERAPY
  2. ASPIRIN [Suspect]
     Indication: ANTICOAGULANT THERAPY

REACTIONS (3)
  - RETROPERITONEAL HAEMORRHAGE [None]
  - ABDOMINAL COMPARTMENT SYNDROME [None]
  - NEUROPATHY PERIPHERAL [None]
